FAERS Safety Report 5285584-6 (Version None)
Quarter: 2007Q1

REPORT INFORMATION
  Report Type: 
  Country: None (occurrence: None)
  Receive Date: 20061229
  Receipt Date: 20060926
  Transmission Date: 20070707
  Serious: Yes (Other)
  Sender: FDA-Public Use
  Company Number: 2006UW18766

PATIENT
  Age: 89 Year
  Sex: Female
  Weight: 54.431 kg

DRUGS (3)
  1. CRESTOR [Suspect]
     Indication: BLOOD CHOLESTEROL INCREASED
     Dosage: 5 MG QD PO
     Route: 048
  2. GEMFIBROZIL [Concomitant]
  3. LABETALOL HCL [Concomitant]

REACTIONS (1)
  - FREQUENT BOWEL MOVEMENTS [None]
